FAERS Safety Report 7765610-2 (Version None)
Quarter: 2011Q3

REPORT INFORMATION
  Report Type: 
  Country: None (occurrence: None)
  Receive Date: 20110921
  Receipt Date: 20110915
  Transmission Date: 20111222
  Serious: Yes (Other)
  Sender: FDA-Public Use
  Company Number: PHHY2011HU82694

PATIENT
  Age: 63 Year
  Sex: Male

DRUGS (3)
  1. ACITRETIN [Concomitant]
     Dosage: 35 MG, DAILY
  2. METHOTREXATE [Concomitant]
     Dosage: 10 MG, WEEKLY DOSE FOR HALF A YEAR
     Route: 048
  3. DICLOFENAC SODIUM [Suspect]
     Indication: ARTHROPATHY
     Dosage: UNK UKN, UNK
     Route: 048

REACTIONS (4)
  - ARTHROPATHY [None]
  - RENAL FAILURE ACUTE [None]
  - ERYTHEMA MULTIFORME [None]
  - SKIN DISORDER [None]
